FAERS Safety Report 18099697 (Version 10)
Quarter: 2021Q3

REPORT INFORMATION
  Report Type: Report from Study
  Country: JP (occurrence: JP)
  Receive Date: 20200731
  Receipt Date: 20210708
  Transmission Date: 20211014
  Serious: Yes (Hospitalization, Other)
  Sender: FDA-Public Use
  Company Number: JP-PFIZER INC-2019-05606

PATIENT
  Age: 61 Year
  Sex: Male
  Weight: 64.1 kg

DRUGS (20)
  1. YERVOY [Suspect]
     Active Substance: IPILIMUMAB
     Indication: MALIGNANT MELANOMA
     Dosage: 3 MG/KG
     Route: 041
     Dates: start: 20181219, end: 20181219
  2. MEKINIST [Suspect]
     Active Substance: TRAMETINIB DIMETHYL SULFOXIDE
     Indication: MALIGNANT MELANOMA
     Dosage: UNK
     Route: 065
  3. OPDIVO [Suspect]
     Active Substance: NIVOLUMAB
     Dosage: 240 MG
     Route: 041
     Dates: start: 20191028, end: 20191225
  4. MEKINIST [Suspect]
     Active Substance: TRAMETINIB DIMETHYL SULFOXIDE
     Dosage: 2 MG
     Route: 065
     Dates: start: 20190521, end: 20190530
  5. OPDIVO [Suspect]
     Active Substance: NIVOLUMAB
     Indication: MALIGNANT MELANOMA
     Dosage: UNK LAST ADMINISTRATION DATE: 28 NOV 2018
     Route: 041
     Dates: end: 20181128
  6. BAKTAR [Suspect]
     Active Substance: SULFAMETHOXAZOLE\TRIMETHOPRIM
     Dosage: UNK
     Route: 065
  7. MEKTOVI [Suspect]
     Active Substance: BINIMETINIB
     Indication: MALIGNANT MELANOMA
     Dosage: 45 MG, Q12H
     Route: 048
     Dates: start: 20190418, end: 20190419
  8. MEKTOVI [Suspect]
     Active Substance: BINIMETINIB
     Dosage: 30 MG, Q12H
     Route: 048
     Dates: start: 20200205, end: 20200317
  9. MEKTOVI [Suspect]
     Active Substance: BINIMETINIB
     Dosage: 45 MG, Q12H
     Route: 048
     Dates: start: 20200318
  10. BRAFTOVI [Suspect]
     Active Substance: ENCORAFENIB
     Dosage: 450 MG, EVERYDAY
     Route: 048
     Dates: start: 20190425, end: 20190425
  11. BRAFTOVI [Suspect]
     Active Substance: ENCORAFENIB
     Dosage: 450 MG, EVERYDAY
     Route: 048
     Dates: start: 20200318
  12. BRAFTOVI [Suspect]
     Active Substance: ENCORAFENIB
     Indication: MALIGNANT MELANOMA
     Dosage: 450 MG, EVERYDAY
     Route: 048
     Dates: start: 20190418, end: 20190419
  13. TAMIFLU [Suspect]
     Active Substance: OSELTAMIVIR PHOSPHATE
     Dosage: UNK
     Route: 065
  14. MEKTOVI [Suspect]
     Active Substance: BINIMETINIB
     Dosage: 45 MG, QOD
     Route: 048
     Dates: start: 20200503
  15. TAFINLAR [Suspect]
     Active Substance: DABRAFENIB MESYLATE
     Indication: MALIGNANT MELANOMA
     Dosage: UNK
     Route: 065
  16. BRAFTOVI [Suspect]
     Active Substance: ENCORAFENIB
     Dosage: 300 MG, EVERYDAY
     Route: 048
     Dates: start: 20200205, end: 20200317
  17. BRAFTOVI [Suspect]
     Active Substance: ENCORAFENIB
     Dosage: 450 MG, QOD
     Route: 048
     Dates: start: 20200503
  18. MEKTOVI [Suspect]
     Active Substance: BINIMETINIB
     Dosage: 45 MG, Q12H
     Route: 048
     Dates: start: 20190425, end: 20190425
  19. OPDIVO [Suspect]
     Active Substance: NIVOLUMAB
     Dosage: 80 MG
     Route: 041
     Dates: start: 20181219, end: 20181219
  20. TAFINLAR [Suspect]
     Active Substance: DABRAFENIB MESYLATE
     Dosage: 300 MG
     Route: 065
     Dates: start: 20190521, end: 20190530

REACTIONS (13)
  - Serous retinal detachment [Recovering/Resolving]
  - Acute kidney injury [Recovering/Resolving]
  - Liver disorder [Unknown]
  - Vomiting [Unknown]
  - Cystoid macular oedema [Recovering/Resolving]
  - Cystoid macular oedema [Recovering/Resolving]
  - Rhabdomyolysis [Recovering/Resolving]
  - Serous retinal detachment [Recovering/Resolving]
  - Abdominal discomfort [Unknown]
  - Serous retinal detachment [Recovering/Resolving]
  - Serous retinal detachment [Unknown]
  - Pyrexia [Recovering/Resolving]
  - Enterocolitis [Recovered/Resolved]

NARRATIVE: CASE EVENT DATE: 20181226
